FAERS Safety Report 8084268 (Version 2)
Quarter: 2012Q4

REPORT INFORMATION
  Report Type: 
  Country: US (occurrence: US)
  Receive Date: 20110810
  Receipt Date: 20121115
  Transmission Date: 20130627
  Serious: Yes (Hospitalization, Disabling, Other)
  Sender: FDA-Public Use
  Company Number: US-GLAXOSMITHKLINE-A0858537A

PATIENT
  Age: 56 Year
  Sex: Male
  Weight: 89.1 kg

DRUGS (3)
  1. LAMICTAL [Suspect]
     Indication: PROPHYLAXIS
     Dosage: 50MG Per day
     Route: 048
     Dates: start: 20100315, end: 20100405
  2. PRILOSEC [Concomitant]
  3. IBUPROFEN [Concomitant]

REACTIONS (15)
  - Convulsion [Not Recovered/Not Resolved]
  - Aggression [Unknown]
  - Tourette^s disorder [Unknown]
  - Tremor [Unknown]
  - Dizziness [Unknown]
  - Vertigo [Unknown]
  - Dyskinesia [Unknown]
  - Dyskinesia [Unknown]
  - Crying [Unknown]
  - Movement disorder [Unknown]
  - Gastrooesophageal reflux disease [Unknown]
  - Pain [Unknown]
  - Adverse drug reaction [Unknown]
  - Gait disturbance [Unknown]
  - Tic [Unknown]
